FAERS Safety Report 5574414-0 (Version None)
Quarter: 2007Q4

REPORT INFORMATION
  Report Type: 
  Country: None (occurrence: None)
  Receive Date: 20071227
  Receipt Date: 20071218
  Transmission Date: 20080405
  Serious: Yes (Hospitalization)
  Sender: FDA-Public Use
  Company Number: JP-JNJFOC-20070505498

PATIENT
  Sex: Female
  Weight: 49 kg

DRUGS (6)
  1. REMICADE [Suspect]
     Route: 042
  2. REMICADE [Suspect]
     Route: 042
  3. REMICADE [Suspect]
     Indication: RHEUMATOID ARTHRITIS
     Route: 042
  4. RHEUMATREX [Suspect]
     Indication: RHEUMATOID ARTHRITIS
     Route: 048
  5. PYRAZINAMIDE [Suspect]
     Indication: TUBERCULOSIS
  6. RIFAMPICIN [Suspect]
     Indication: TUBERCULOSIS

REACTIONS (3)
  - DISSEMINATED TUBERCULOSIS [None]
  - LIVER DISORDER [None]
  - PULMONARY TUBERCULOSIS [None]
